FAERS Safety Report 6317461-3 (Version None)
Quarter: 2009Q3

REPORT INFORMATION
  Report Type: 
  Country: None (occurrence: None)
  Receive Date: 20090821
  Receipt Date: 20090810
  Transmission Date: 20100115
  Serious: Yes (Other)
  Sender: FDA-Public Use
  Company Number: US-WYE-H09750409

PATIENT
  Sex: Female

DRUGS (3)
  1. PRISTIQ [Suspect]
     Indication: DEPRESSION
     Route: 048
     Dates: start: 20090201, end: 20090501
  2. NORGESTIMATE AND ETHINYL ESTRADIOL [Concomitant]
     Dosage: UNKNOWN
  3. LEVONORGESTREL [Concomitant]
     Dosage: UNKNOWN

REACTIONS (2)
  - FATIGUE [None]
  - SALIVARY GLAND MUCOCOELE [None]
